FAERS Safety Report 7778593-6 (Version None)
Quarter: 2011Q3

REPORT INFORMATION
  Report Type: 
  Country: None (occurrence: None)
  Receive Date: 20110926
  Receipt Date: 20110914
  Transmission Date: 20111222
  Serious: Yes (Other)
  Sender: FDA-Public Use
  Company Number: US-BAYER-2011-086538

PATIENT
  Sex: Female

DRUGS (3)
  1. YAZ [Suspect]
     Dosage: UNK
     Dates: start: 20011101
  2. YASMIN [Suspect]
     Dosage: UNK
     Dates: start: 20011101
  3. DROSPIRENONE AND ETHINYL ESTRADIOL [Suspect]
     Dosage: UNK
     Dates: start: 20011101

REACTIONS (5)
  - DEEP VEIN THROMBOSIS [None]
  - FEAR [None]
  - PAIN [None]
  - INJURY [None]
  - GALLBLADDER DISORDER [None]
